FAERS Safety Report 17542272 (Version 2)
Quarter: 2020Q2

REPORT INFORMATION
  Report Type: Report from Study
  Country: US (occurrence: US)
  Receive Date: 20200313
  Receipt Date: 20200601
  Transmission Date: 20200713
  Serious: No
  Sender: FDA-Public Use
  Company Number: US-009507513-2003USA005457

PATIENT
  Age: 58 Year
  Sex: Male

DRUGS (1)
  1. PREGNYL [Suspect]
     Active Substance: CHORIOGONADOTROPIN ALFA
     Indication: SPERM CONCENTRATION DECREASED
     Dosage: ONE AND A HALF CC EVERY OTHER DAY. ROUTE OF ADMINISTRATION: INJECTION
     Dates: start: 201910, end: 201911

REACTIONS (2)
  - Movement disorder [Recovering/Resolving]
  - Product dose omission [Unknown]

NARRATIVE: CASE EVENT DATE: 201911
